FAERS Safety Report 5280620-5 (Version None)
Quarter: 2007Q1

REPORT INFORMATION
  Report Type: 
  Country: None (occurrence: None)
  Receive Date: 20070329
  Receipt Date: 20070319
  Transmission Date: 20070707
  Serious: Yes (Other)
  Sender: FDA-Public Use
  Company Number: 2007AP01682

PATIENT
  Age: 72 Year
  Sex: Male

DRUGS (2)
  1. CRESTOR [Suspect]
     Indication: HYPERCHOLESTEROLAEMIA
     Route: 048
  2. WARFARIN SODIUM [Concomitant]

REACTIONS (1)
  - CEREBRAL INFARCTION [None]
